FAERS Safety Report 6817666-9 (Version None)
Quarter: 2010Q3

REPORT INFORMATION
  Report Type: 
  Country: None (occurrence: None)
  Receive Date: 20100706
  Receipt Date: 20100624
  Transmission Date: 20110219
  Serious: Yes (Hospitalization, Other)
  Sender: FDA-Public Use
  Company Number: US-ELI_LILLY_AND_COMPANY-US201005003396

PATIENT
  Sex: Male

DRUGS (6)
  1. GEMZAR [Suspect]
     Indication: BLADDER CANCER
     Dosage: 2200 MG, MONTHLY (1/M)
     Route: 042
     Dates: start: 20100419, end: 20100608
  2. DECADRON [Concomitant]
  3. ZOFRAN [Concomitant]
  4. ATIVAN [Concomitant]
  5. CARBOPLATIN [Concomitant]
  6. DILAUDID [Concomitant]

REACTIONS (5)
  - CHOLECYSTITIS ACUTE [None]
  - CHOLELITHIASIS [None]
  - NORMOCHROMIC NORMOCYTIC ANAEMIA [None]
  - RENAL FAILURE [None]
  - URINARY TRACT INFECTION [None]
